FAERS Safety Report 15159908 (Version 5)
Quarter: 2020Q1

REPORT INFORMATION
  Report Type: Report from Study
  Country: DE (occurrence: DE)
  Receive Date: 20180718
  Receipt Date: 20200320
  Transmission Date: 20200409
  Serious: Yes (Death, Hospitalization)
  Sender: FDA-Public Use
  Company Number: DE-SA-2018SA173974

PATIENT
  Age: 68 Year
  Sex: Male
  Weight: 67 kg

DRUGS (2)
  1. CABAZITAXEL [Suspect]
     Active Substance: CABAZITAXEL
     Dosage: 20 MG/M2, QCY
     Route: 042
     Dates: start: 20180326, end: 20180326
  2. CABAZITAXEL [Suspect]
     Active Substance: CABAZITAXEL
     Indication: HORMONE-REFRACTORY PROSTATE CANCER
     Dosage: 20 MG/M2 , QCY
     Route: 042
     Dates: start: 20180618, end: 20180618

REACTIONS (4)
  - Colitis [Recovered/Resolved]
  - Haemobilia [Fatal]
  - Hepatic failure [Not Recovered/Not Resolved]
  - Febrile neutropenia [Recovered/Resolved]

NARRATIVE: CASE EVENT DATE: 20180625
